FAERS Safety Report 8177948-8 (Version None)
Quarter: 2012Q1

REPORT INFORMATION
  Report Type: 
  Country: None (occurrence: None)
  Receive Date: 20120130
  Receipt Date: 20110613
  Transmission Date: 20120608
  Serious: Yes (Hospitalization, Other)
  Sender: FDA-Public Use
  Company Number: 035306

PATIENT
  Age: 24 Year
  Sex: Female
  Weight: 50 kg

DRUGS (12)
  1. PROPRANOLOL [Concomitant]
  2. ALBUTEROL [Concomitant]
  3. KEPPRA [Suspect]
     Indication: EPILEPSY
     Dosage: (1000 MG QD ORAL)
     Route: 048
     Dates: start: 20070113
  4. CELEXA [Concomitant]
  5. BACLOFEN [Concomitant]
  6. IBUPROFEN TABLETS [Concomitant]
  7. PROVIGIL [Concomitant]
  8. TUMS EXTRA STRENGTH [Concomitant]
  9. RANITIDINE [Concomitant]
  10. ALLEGRA-D 12 HOUR [Concomitant]
  11. NEXIUM [Concomitant]
  12. FLUTICASONE PROPIONATE [Concomitant]

REACTIONS (5)
  - ASTHMA [None]
  - MAJOR DEPRESSION [None]
  - GASTROOESOPHAGEAL REFLUX DISEASE [None]
  - PERENNIAL ALLERGY [None]
  - COELIAC DISEASE [None]
